FAERS Safety Report 23930030 (Version 2)
Quarter: 2025Q2

REPORT INFORMATION
  Report Type: Spontaneous
  Country: US (occurrence: US)
  Receive Date: 20240601
  Receipt Date: 20250517
  Transmission Date: 20250717
  Serious: Yes (Other)
  Sender: AUROBINDO
  Company Number: US-AUROBINDO-AUR-APL-2024-026083

PATIENT
  Age: 48 Year
  Sex: Male

DRUGS (8)
  1. CYCLOBENZAPRINE [Suspect]
     Active Substance: CYCLOBENZAPRINE
     Indication: Paraneoplastic syndrome
     Dosage: 10 MILLIGRAM, 3 TIMES A DAY
     Route: 065
  2. BACLOFEN [Suspect]
     Active Substance: BACLOFEN
     Indication: Paraneoplastic syndrome
     Route: 065
  3. CISPLATIN [Suspect]
     Active Substance: CISPLATIN
     Indication: Lung neoplasm
     Route: 065
     Dates: start: 2017
  4. ETOPOSIDE [Suspect]
     Active Substance: ETOPOSIDE
     Indication: Lung neoplasm
     Route: 065
     Dates: start: 2017
  5. NIVOLUMAB [Suspect]
     Active Substance: NIVOLUMAB
     Indication: Carcinoid tumour
     Route: 065
  6. VOROLANIB [Suspect]
     Active Substance: VOROLANIB
     Indication: Carcinoid tumour
     Route: 065
  7. METHYLPREDNISOLONE [Concomitant]
     Active Substance: METHYLPREDNISOLONE
     Indication: Product used for unknown indication
     Route: 042
  8. PREDNISONE [Concomitant]
     Active Substance: PREDNISONE
     Indication: Product used for unknown indication
     Route: 065

REACTIONS (1)
  - Drug ineffective [Unknown]
